FAERS Safety Report 10867258 (Version 2)
Quarter: 2015Q1

REPORT INFORMATION
  Report Type: Spontaneous
  Country: JP (occurrence: JP)
  Receive Date: 20150225
  Receipt Date: 20150319
  Transmission Date: 20150721
  Serious: Yes (Hospitalization, Other)
  Sender: FDA-Public Use
  Company Number: JP-BAYER-2015-024841

PATIENT
  Age: 27 Year
  Sex: Female
  Weight: 47 kg

DRUGS (4)
  1. BETAFERON [Suspect]
     Active Substance: INTERFERON BETA-1B
     Indication: MULTIPLE SCLEROSIS
     Dosage: 8 MIU, QOD
     Route: 058
     Dates: start: 20071126, end: 20121214
  2. SELBEX [Concomitant]
     Active Substance: TEPRENONE
     Dosage: DAILY DOSE 1 DF
     Route: 048
     Dates: start: 20130802, end: 20150217
  3. LOXONIN [Concomitant]
     Active Substance: LOXOPROFEN SODIUM
     Dosage: DAILY DOSE 1 DF
     Route: 048
     Dates: start: 20071126, end: 20121214
  4. BETAFERON [Suspect]
     Active Substance: INTERFERON BETA-1B
     Indication: MULTIPLE SCLEROSIS
     Dosage: 8 UNK, UNK
     Route: 058
     Dates: start: 20130802, end: 20150217

REACTIONS (6)
  - Cardiac failure [None]
  - Exposure during pregnancy [Recovered/Resolved]
  - Cardiomyopathy [Recovering/Resolving]
  - Caesarean section [Recovered/Resolved]
  - Dyspnoea [Recovering/Resolving]
  - Cough [Recovering/Resolving]

NARRATIVE: CASE EVENT DATE: 20130727
